FAERS Safety Report 8036707-7 (Version None)
Quarter: 2012Q1

REPORT INFORMATION
  Report Type: 
  Country: None (occurrence: None)
  Receive Date: 20120106
  Receipt Date: 20111226
  Transmission Date: 20120608
  Serious: Yes (Other)
  Sender: FDA-Public Use
  Company Number: DK-GDP-11412695

PATIENT
  Sex: Male

DRUGS (4)
  1. SIMVASTATIN [Concomitant]
  2. ASPIRIN [Concomitant]
  3. ORACEA [Suspect]
     Indication: ROSACEA
     Dosage: (40 MG QD ORAL)
     Route: 048
     Dates: start: 20111004
  4. LOSARTAN POTASSIUM AND HYDROCHLOROTHIAZIDE [Concomitant]

REACTIONS (2)
  - RASH [None]
  - CUTANEOUS LUPUS ERYTHEMATOSUS [None]
